FAERS Safety Report 16225742 (Version 1)
Quarter: 2019Q2

REPORT INFORMATION
  Report Type: Spontaneous
  Country: KR (occurrence: KR)
  Receive Date: 20190422
  Receipt Date: 20190422
  Transmission Date: 20190711
  Serious: Yes (Death, Hospitalization, Other)
  Sender: FDA-Public Use
  Company Number: KR-009507513-1904KOR008175

PATIENT
  Sex: Female

DRUGS (16)
  1. TEICONIN [Concomitant]
     Dosage: QUANTITY 2, DAYS 1
     Dates: start: 20181102, end: 20181102
  2. KEYTRUDA [Suspect]
     Active Substance: PEMBROLIZUMAB
     Indication: CERVIX CARCINOMA RECURRENT
     Dosage: UNK
     Dates: start: 20181108, end: 20181108
  3. MATRIFEN [Concomitant]
     Active Substance: FENTANYL
     Dosage: PATCH 50MCG/H (16.8CM^2/PATCH), QUANTITY 1, DAYS 12
     Dates: start: 20181101, end: 20181119
  4. TAMIPOOL [Concomitant]
     Active Substance: VITAMINS
     Dosage: QUANTITY 1, DAYS 69
     Dates: start: 20180823, end: 20181031
  5. MATRIFEN [Concomitant]
     Active Substance: FENTANYL
     Dosage: PATCH 12MCG/H (4.2CM^2/PATCH), QUANTITY 1, DAYS 4
     Dates: start: 20180820, end: 20180830
  6. MATRIFEN [Concomitant]
     Active Substance: FENTANYL
     Dosage: PATCH 50MCG/H (16.8CM^2/PATCH), QUANTITY 1, DAYS 24
     Dates: start: 20180825, end: 20181031
  7. TAMIPOOL [Concomitant]
     Active Substance: VITAMINS
     Dosage: QUANTITY 1, DAYS 18
     Dates: start: 20181101, end: 20181118
  8. TEICONIN [Concomitant]
     Dosage: QUANTITY 1, DAYS 18
     Dates: start: 20181103, end: 20181120
  9. TABAXIN [Concomitant]
     Active Substance: PIPERACILLIN SODIUM\TAZOBACTAM SODIUM
     Dosage: QUANTITY 2, DAYS 2
     Dates: start: 20181029, end: 20181029
  10. MATRIFEN [Concomitant]
     Active Substance: FENTANYL
     Dosage: PATCH 25MCG/H (8.4CM^2/PATCH), QUANTITY 1, DAYS 6
     Dates: start: 20180816, end: 20180915
  11. WINUF [Concomitant]
     Dosage: QUANTITY 1, DAYS 56
     Dates: start: 20180905, end: 20181031
  12. TABAXIN [Concomitant]
     Active Substance: PIPERACILLIN SODIUM\TAZOBACTAM SODIUM
     Dosage: QUANTITY 3, DAYS 1
     Dates: start: 20181101, end: 20181101
  13. WINUF [Concomitant]
     Dosage: QUANTITY 1, DAYS 19
     Dates: start: 20181101, end: 20181119
  14. MATRIFEN [Concomitant]
     Active Substance: FENTANYL
     Dosage: PATCH 100MCG/H (33.6 CM^2/PATCH), QUANTITY 1, DAYS 6
     Dates: start: 20180903, end: 20180918
  15. WINUF [Concomitant]
     Dosage: QUANTITY 1, DAYS 13
     Dates: start: 20180823, end: 20180904
  16. TABAXIN [Concomitant]
     Active Substance: PIPERACILLIN SODIUM\TAZOBACTAM SODIUM
     Dosage: QUANTITY 4, DAYS 2
     Dates: start: 20181030, end: 20181031

REACTIONS (3)
  - Malignant neoplasm progression [Fatal]
  - Adverse event [Unknown]
  - Product use in unapproved indication [Unknown]

NARRATIVE: CASE EVENT DATE: 201811
